FAERS Safety Report 23250484 (Version 3)
Quarter: 2024Q1

REPORT INFORMATION
  Report Type: Other
  Country: US (occurrence: None)
  Receive Date: 20231201
  Receipt Date: 20240104
  Transmission Date: 20240410
  Serious: Yes (Hospitalization)
  Sender: FDA-Public Use
  Company Number: US-ROCHE-3467204

PATIENT
  Age: 52 Year
  Sex: Female
  Weight: 54.48 kg

DRUGS (6)
  1. OCREVUS [Suspect]
     Active Substance: OCRELIZUMAB
     Indication: Primary progressive multiple sclerosis
     Dosage: ^TO SLOW THE PROGRESSION OF PRIMARY PROGRESSIVE MULTIPLE SCLEROSIS^ ;ONGOING: YES
     Route: 042
     Dates: start: 2018, end: 20231128
  2. ROPINIROLE [Concomitant]
     Active Substance: ROPINIROLE
  3. REMERON [Concomitant]
     Active Substance: MIRTAZAPINE
  4. OXYBUTYNIN [Concomitant]
     Active Substance: OXYBUTYNIN
  5. CITALOPRAM [Concomitant]
     Active Substance: CITALOPRAM HYDROBROMIDE
  6. BACLOFEN [Concomitant]
     Active Substance: BACLOFEN

REACTIONS (4)
  - Pneumonia [Not Recovered/Not Resolved]
  - Influenza B virus test positive [Recovered/Resolved]
  - Fall [Unknown]
  - Weight decreased [Unknown]

NARRATIVE: CASE EVENT DATE: 20231113
